FAERS Safety Report 7271843-4 (Version None)
Quarter: 2011Q1

REPORT INFORMATION
  Report Type: 
  Country: None (occurrence: None)
  Receive Date: 20110127
  Receipt Date: 20110114
  Transmission Date: 20110831
  Serious: Yes (Death)
  Sender: FDA-Public Use
  Company Number: BR-001473

PATIENT
  Sex: Female

DRUGS (1)
  1. NAGLAZYME [Suspect]
     Indication: MUCOPOLYSACCHARIDOSIS IV
     Dosage: (20 MG 1X/WEEK INTRAVENOUS DRPI)
     Route: 041
     Dates: start: 20080416

REACTIONS (1)
  - RESPIRATORY FAILURE [None]
